FAERS Safety Report 17934411 (Version 1)
Quarter: 2020Q2

REPORT INFORMATION
  Report Type: Spontaneous
  Country: US (occurrence: US)
  Receive Date: 20200623
  Receipt Date: 20200623
  Transmission Date: 20200714
  Serious: Yes (Death)
  Sender: FDA-Public Use
  Company Number: None

PATIENT
  Age: 80 Year
  Sex: Female
  Weight: 102 kg

DRUGS (3)
  1. DOXYCYCLI NE [Concomitant]
     Dates: start: 20200528, end: 20200529
  2. REMDESIVIR. [Suspect]
     Active Substance: REMDESIVIR
  3. CEFLRIAXONE [Concomitant]
     Dates: start: 20200528, end: 20200601

REACTIONS (2)
  - Refusal of treatment by relative [None]
  - Refusal of treatment by patient [None]

NARRATIVE: CASE EVENT DATE: 20200617
